FAERS Safety Report 25088748 (Version 1)
Quarter: 2025Q1

REPORT INFORMATION
  Report Type: Spontaneous
  Country: RU (occurrence: RU)
  Receive Date: 20250318
  Receipt Date: 20250318
  Transmission Date: 20250408
  Serious: Yes (Other)
  Sender: ROCHE
  Company Number: RU-ROCHE-10000229748

PATIENT
  Age: 7 Year
  Sex: Female

DRUGS (2)
  1. TAMIFLU [Suspect]
     Active Substance: OSELTAMIVIR PHOSPHATE
     Indication: Illness
     Route: 065
  2. TAMIFLU [Suspect]
     Active Substance: OSELTAMIVIR PHOSPHATE
     Indication: Pyrexia

REACTIONS (4)
  - Seizure [Unknown]
  - Vomiting [Unknown]
  - Somnolence [Unknown]
  - Decreased appetite [Unknown]
